FAERS Safety Report 7032516-6 (Version None)
Quarter: 2010Q4

REPORT INFORMATION
  Report Type: 
  Country: None (occurrence: None)
  Receive Date: 20101007
  Receipt Date: 20100924
  Transmission Date: 20110411
  Serious: Yes (Other)
  Sender: FDA-Public Use
  Company Number: NL-GENZYME-FLUD-1000253

PATIENT
  Age: 9 Month
  Sex: Male

DRUGS (6)
  1. FLUDARA [Suspect]
     Indication: STEM CELL TRANSPLANT
  2. FLUDARA [Suspect]
     Indication: MYELOID LEUKAEMIA
  3. THIOTEPA [Suspect]
     Indication: STEM CELL TRANSPLANT
  4. THEOPHYLLINE [Suspect]
     Indication: STEM CELL TRANSPLANT
  5. ANTI-THYMOCYTE GLOBULIN NOS [Suspect]
     Indication: STEM CELL TRANSPLANT
  6. BUSULFAN [Suspect]
     Indication: STEM CELL TRANSPLANT

REACTIONS (3)
  - EPSTEIN-BARR VIRUS INFECTION [None]
  - TRANSPLANT REJECTION [None]
  - VENOOCCLUSIVE DISEASE [None]
